FAERS Safety Report 9911608 (Version 4)
Quarter: 2014Q2

REPORT INFORMATION
  Report Type: Report from Study
  Country: US (occurrence: US)
  Receive Date: 20140219
  Receipt Date: 20140411
  Transmission Date: 20141212
  Serious: Yes (Hospitalization, Other)
  Sender: FDA-Public Use
  Company Number: PHEH2014US003103

PATIENT
  Sex: Male

DRUGS (1)
  1. SANDOSTATIN LAR DEPOT [Suspect]
     Indication: NEOPLASM
     Dosage: 30 MG

REACTIONS (3)
  - Pain [Not Recovered/Not Resolved]
  - Terminal state [Unknown]
  - Drug ineffective [Unknown]
